FAERS Safety Report 4766541-2 (Version None)
Quarter: 2005Q3

REPORT INFORMATION
  Report Type: 
  Country: None (occurrence: None)
  Receive Date: 20050909
  Receipt Date: 20050825
  Transmission Date: 20060218
  Serious: Yes (Hospitalization)
  Sender: FDA-Public Use
  Company Number: B0392762A

PATIENT

DRUGS (2)
  1. PAXIL [Suspect]
     Dosage: TRANSPLACENTARY
     Route: 064
  2. DESIPRAMINE HCL [Suspect]
     Dosage: TRANSPLACENTARY
     Route: 064

REACTIONS (16)
  - DRUG DISPENSING ERROR [None]
  - DRUG EXPOSURE DURING PREGNANCY [None]
  - DRUG INTERACTION [None]
  - DRUG WITHDRAWAL SYNDROME NEONATAL [None]
  - EYE MOVEMENT DISORDER [None]
  - FEEDING DISORDER NEONATAL [None]
  - FEELING JITTERY [None]
  - HAEMATOCHEZIA [None]
  - HYPOTHERMIA NEONATAL [None]
  - IRRITABILITY [None]
  - LETHARGY [None]
  - MYOCLONUS [None]
  - NECROTISING ENTEROCOLITIS NEONATAL [None]
  - NEONATAL DISORDER [None]
  - PNEUMATOSIS INTESTINALIS [None]
  - SOMNOLENCE [None]
